FAERS Safety Report 5164808-X (Version None)
Quarter: 2006Q4

REPORT INFORMATION
  Report Type: 
  Country: None (occurrence: None)
  Receive Date: 20061124
  Receipt Date: 20061110
  Transmission Date: 20070319
  Serious: Yes (Other)
  Sender: FDA-Public Use
  Company Number: 232481

PATIENT
  Age: 50 Year
  Sex: Female
  Weight: 63 kg

DRUGS (1)
  1. AVASTIN [Suspect]
     Indication: EYE DISORDER
     Dosage: INTRAVITREAL
     Route: 050
     Dates: start: 20060601, end: 20060901

REACTIONS (4)
  - BLINDNESS UNILATERAL [None]
  - DRUG HYPERSENSITIVITY [None]
  - EYE DISORDER [None]
  - EYE INFLAMMATION [None]
